FAERS Safety Report 11512822 (Version 1)
Quarter: 2015Q3

REPORT INFORMATION
  Report Type: Spontaneous
  Country: GB (occurrence: None)
  Receive Date: 20150915
  Receipt Date: 20150915
  Transmission Date: 20151125
  Serious: Yes (Other)
  Sender: FDA-Public Use
  Company Number: None

PATIENT
  Age: 54 Year
  Sex: Female
  Weight: 140 kg

DRUGS (2)
  1. METFORMIN [Concomitant]
     Active Substance: METFORMIN HYDROCHLORIDE
  2. LIRAGLUTIDE [Suspect]
     Active Substance: LIRAGLUTIDE
     Indication: TYPE 2 DIABETES MELLITUS

REACTIONS (8)
  - Diarrhoea [None]
  - Pharyngeal oedema [None]
  - Hyperhidrosis [None]
  - Abdominal pain upper [None]
  - Nausea [None]
  - Chills [None]
  - Myalgia [None]
  - Vomiting [None]

NARRATIVE: CASE EVENT DATE: 20150914
